FAERS Safety Report 6247539-4 (Version None)
Quarter: 2009Q2

REPORT INFORMATION
  Report Type: 
  Country: None (occurrence: None)
  Receive Date: 20090626
  Receipt Date: 20090612
  Transmission Date: 20091009
  Serious: Yes (Hospitalization)
  Sender: FDA-Public Use
  Company Number: BE-WYE-H09361909

PATIENT
  Sex: Female
  Weight: 93.5 kg

DRUGS (1)
  1. ZURCAL [Suspect]
     Route: 042
     Dates: start: 20090401, end: 20090401

REACTIONS (4)
  - ACUTE HEPATIC FAILURE [None]
  - BLOOD GLUCOSE DECREASED [None]
  - METABOLIC ACIDOSIS [None]
  - SHOCK [None]
